FAERS Safety Report 6248342-1 (Version None)
Quarter: 2009Q2

REPORT INFORMATION
  Report Type: 
  Country: None (occurrence: None)
  Receive Date: 20090629
  Receipt Date: 20090619
  Transmission Date: 20091009
  Serious: Yes (Other)
  Sender: FDA-Public Use
  Company Number: PHHY2009BR24839

PATIENT
  Sex: Female

DRUGS (4)
  1. FORASEQ [Suspect]
  2. FORASEQ [Suspect]
  3. FORASEQ [Suspect]
  4. FORASEQ [Suspect]

REACTIONS (4)
  - DEVICE MALFUNCTION [None]
  - DYSPNOEA [None]
  - MEDIASTINUM NEOPLASM [None]
  - WHEEZING [None]
